FAERS Safety Report 4587269-8 (Version None)
Quarter: 2005Q1

REPORT INFORMATION
  Report Type: 
  Country: None (occurrence: None)
  Receive Date: 20050215
  Receipt Date: 20050202
  Transmission Date: 20050727
  Serious: Yes (Hospitalization, Other)
  Sender: FDA-Public Use
  Company Number: 211804

PATIENT
  Age: 29 Year
  Sex: Male
  Weight: 70 kg

DRUGS (2)
  1. RITUXAN [Suspect]
     Indication: THROMBOTIC THROMBOCYTOPENIC PURPURA
     Dosage: 674  1/WEEK, INTRAVENOUS
     Route: 042
     Dates: start: 20041231
  2. PHENOBARBITAL TAB [Suspect]
     Dosage: 80 MG, Q12H

REACTIONS (1)
  - STEVENS-JOHNSON SYNDROME [None]
